FAERS Safety Report 6005311-4 (Version None)
Quarter: 2008Q4

REPORT INFORMATION
  Report Type: 
  Country: None (occurrence: None)
  Receive Date: 20081215
  Receipt Date: 20081207
  Transmission Date: 20090506
  Serious: Yes (Other)
  Sender: FDA-Public Use
  Company Number: CHPA2008US21787

PATIENT
  Age: 54 Year
  Sex: Female

DRUGS (14)
  1. NICOTINE [Suspect]
     Indication: SMOKING CESSATION THERAPY
     Dosage: 21 MG, QD, TRANSDERMAL
     Route: 062
     Dates: start: 20081205, end: 20081206
  2. SIMVASTATIN [Concomitant]
  3. LISINOPRIL [Concomitant]
  4. METOPROLOL [Concomitant]
  5. EFFEXOR [Concomitant]
  6. K-TAB [Concomitant]
  7. LASIX [Concomitant]
  8. COLCHICINE [Concomitant]
  9. METOLAZONE [Concomitant]
  10. PHENOBARBITAL TAB [Concomitant]
  11. GABAPENTIN [Concomitant]
  12. FENTANYL-100 [Concomitant]
  13. INSULIN [Concomitant]
  14. GLIPIZIDE [Concomitant]

REACTIONS (7)
  - BACK PAIN [None]
  - CHEST PAIN [None]
  - COUGH [None]
  - HEADACHE [None]
  - MIGRAINE [None]
  - NECK PAIN [None]
  - VOMITING [None]
